FAERS Safety Report 5958679-9 (Version None)
Quarter: 2008Q4

REPORT INFORMATION
  Report Type: 
  Country: None (occurrence: None)
  Receive Date: 20081119
  Receipt Date: 20081107
  Transmission Date: 20090506
  Serious: Yes (Other)
  Sender: FDA-Public Use
  Company Number: DE-PFIZER INC-2008095346

PATIENT
  Sex: Female

DRUGS (2)
  1. ZELDOX (CAPSULES) [Suspect]
  2. LAMOTRIGINE [Concomitant]

REACTIONS (1)
  - EXTRASYSTOLES [None]
